FAERS Safety Report 5915764-5 (Version None)
Quarter: 2008Q4

REPORT INFORMATION
  Report Type: 
  Country: None (occurrence: None)
  Receive Date: 20081010
  Receipt Date: 20081008
  Transmission Date: 20090506
  Serious: Yes (Hospitalization)
  Sender: FDA-Public Use
  Company Number: US-B.I. PHARMACEUTICALS,INC./RIDGEFIELD-2008-BP-12670BP

PATIENT
  Sex: Female

DRUGS (11)
  1. SPIRIVA [Suspect]
     Indication: CHRONIC OBSTRUCTIVE PULMONARY DISEASE
     Dosage: 18MCG
     Route: 055
     Dates: start: 20050101
  2. K-DUR [Concomitant]
     Indication: BLOOD POTASSIUM DECREASED
     Dosage: 10MG
     Route: 048
  3. LEVOTHYROXINE SODIUM [Concomitant]
     Indication: HYPOTHYROIDISM
     Dosage: .88MG
     Route: 048
  4. CARTIA XT [Concomitant]
     Indication: ATRIAL FIBRILLATION
     Dosage: 180MG
     Route: 048
  5. COZAAR [Concomitant]
     Indication: ATRIAL FIBRILLATION
     Dosage: 50MG
     Route: 048
  6. COUMADIN [Concomitant]
     Indication: ATRIAL FIBRILLATION
     Route: 048
  7. DUONEB [Concomitant]
     Indication: CHRONIC OBSTRUCTIVE PULMONARY DISEASE
     Route: 055
  8. FUROSEMIDE [Concomitant]
     Indication: ATRIAL FIBRILLATION
     Dosage: 40MG
     Route: 048
  9. ALBUTEROL [Concomitant]
     Indication: CHRONIC OBSTRUCTIVE PULMONARY DISEASE
     Route: 055
  10. HYZAAR [Concomitant]
  11. LASIX [Concomitant]

REACTIONS (4)
  - AGEUSIA [None]
  - DRUG INEFFECTIVE [None]
  - JOINT INJURY [None]
  - UNDERDOSE [None]
